FAERS Safety Report 7977247-0 (Version None)
Quarter: 2011Q4

REPORT INFORMATION
  Report Type: 
  Country: None (occurrence: None)
  Receive Date: 20111213
  Receipt Date: 20111104
  Transmission Date: 20120403
  Serious: No
  Sender: FDA-Public Use
  Company Number: US-AMGEN-USASP2011027907

PATIENT
  Age: 66 Year
  Sex: Female

DRUGS (3)
  1. PLAQUENIL [Concomitant]
  2. ENBREL [Suspect]
     Indication: RHEUMATOID ARTHRITIS
     Dosage: 50 MG, 2 TIMES/WK
     Dates: start: 20061201
  3. METHOTREXATE [Concomitant]
     Dosage: UNK UNK, QD
     Dates: start: 19910101

REACTIONS (9)
  - NERVE INJURY [None]
  - MUSCULOSKELETAL DISORDER [None]
  - INCREASED TENDENCY TO BRUISE [None]
  - STRESS [None]
  - INJURY ASSOCIATED WITH DEVICE [None]
  - INJECTION SITE DISCOLOURATION [None]
  - RHEUMATOID ARTHRITIS [None]
  - SKIN ATROPHY [None]
  - MUSCULAR WEAKNESS [None]
